FAERS Safety Report 9694409 (Version 2)
Quarter: 2014Q1

REPORT INFORMATION
  Report Type: Report from Study
  Country: TR (occurrence: TR)
  Receive Date: 20131118
  Receipt Date: 20140130
  Transmission Date: 20141002
  Serious: Yes (Death)
  Sender: FDA-Public Use
  Company Number: TR-CUBIST PHARMACEUTICAL, INC.-2013CBST001120

PATIENT
  Sex: 0

DRUGS (1)
  1. CUBICIN [Suspect]
     Indication: ENDOCARDITIS
     Dosage: 6 MG/KG, UNK
     Route: 042
     Dates: end: 20111224

REACTIONS (1)
  - Death [Fatal]
